FAERS Safety Report 13840168 (Version 1)
Quarter: 2017Q3

REPORT INFORMATION
  Report Type: Spontaneous
  Country: US (occurrence: US)
  Receive Date: 20170807
  Receipt Date: 20170807
  Transmission Date: 20171127
  Serious: Yes (Other)
  Sender: FDA-Public Use
  Company Number: US-GLAXOSMITHKLINE-US2017GSK121701

PATIENT
  Sex: Female
  Weight: 61.23 kg

DRUGS (1)
  1. LAMOTRIGINE. [Suspect]
     Active Substance: LAMOTRIGINE
     Indication: AFFECTIVE DISORDER

REACTIONS (11)
  - Immunodeficiency [Recovered/Resolved]
  - Rash [Recovered/Resolved]
  - Drug intolerance [Not Recovered/Not Resolved]
  - Headache [Recovered/Resolved]
  - Influenza [Recovered/Resolved]
  - Dyspnoea [Recovered/Resolved]
  - Nasopharyngitis [Recovered/Resolved]
  - Condition aggravated [Recovered/Resolved]
  - Drug hypersensitivity [Recovered/Resolved]
  - Anxiety [Recovered/Resolved]
  - Malaise [Recovered/Resolved]
